FAERS Safety Report 15827348 (Version 1)
Quarter: 2019Q1

REPORT INFORMATION
  Report Type: Spontaneous
  Country: US (occurrence: US)
  Receive Date: 20190115
  Receipt Date: 20190115
  Transmission Date: 20190417
  Serious: No
  Sender: FDA-Public Use
  Company Number: US-SA-2019SA009583

PATIENT
  Age: 65 Year
  Sex: Female

DRUGS (1)
  1. SOLIQUA 100/33 [Suspect]
     Active Substance: INSULIN GLARGINE\LIXISENATIDE
     Dosage: 33 U
     Dates: start: 20181211

REACTIONS (3)
  - Intentional product use issue [Unknown]
  - Vomiting [Unknown]
  - Nausea [Unknown]
